FAERS Safety Report 11672444 (Version 1)
Quarter: 2015Q4

REPORT INFORMATION
  Report Type: Spontaneous
  Country: US (occurrence: None)
  Receive Date: 20151027
  Receipt Date: 20151027
  Transmission Date: 20160304
  Serious: No
  Sender: FDA-Public Use
  Company Number: None

PATIENT
  Age: 51 Year
  Sex: Male
  Weight: 107.6 kg

DRUGS (2)
  1. INTEGRILIN [Suspect]
     Active Substance: EPTIFIBATIDE
     Indication: CHEST PAIN
     Dosage: 8.5 HOUR INFUSION
     Route: 042
     Dates: start: 20151005, end: 20151006
  2. INTEGRILIN [Suspect]
     Active Substance: EPTIFIBATIDE
     Indication: CHEST PAIN
     Route: 042
     Dates: start: 20151005

REACTIONS (1)
  - Thrombocytopenia [None]

NARRATIVE: CASE EVENT DATE: 20151006
